FAERS Safety Report 24050380 (Version 3)
Quarter: 2024Q3

REPORT INFORMATION
  Report Type: Report from Study
  Country: US (occurrence: US)
  Receive Date: 20240704
  Receipt Date: 20240802
  Transmission Date: 20241016
  Serious: Yes (Other)
  Sender: INSMED
  Company Number: US-INSMED, INC.-2024-02263-US

PATIENT
  Sex: Male

DRUGS (1)
  1. ARIKAYCE [Suspect]
     Active Substance: AMIKACIN
     Indication: Mycobacterium avium complex infection
     Dosage: 590 MILLIGRAM, QD
     Route: 055
     Dates: start: 20240528, end: 202406

REACTIONS (13)
  - Renal impairment [Unknown]
  - Weight decreased [Unknown]
  - Chest pain [Unknown]
  - Mobility decreased [Recovering/Resolving]
  - Abdominal discomfort [Unknown]
  - Throat irritation [Unknown]
  - Feeling abnormal [Not Recovered/Not Resolved]
  - Wheezing [Not Recovered/Not Resolved]
  - Illness [Unknown]
  - Nausea [Not Recovered/Not Resolved]
  - Dysphonia [Unknown]
  - Dyspnoea [Not Recovered/Not Resolved]
  - Therapy interrupted [Unknown]

NARRATIVE: CASE EVENT DATE: 20240101
